FAERS Safety Report 6326283-9 (Version None)
Quarter: 2009Q3

REPORT INFORMATION
  Report Type: 
  Country: None (occurrence: None)
  Receive Date: 20090824
  Receipt Date: 20090818
  Transmission Date: 20100115
  Serious: Yes (Hospitalization)
  Sender: FDA-Public Use
  Company Number: US-GENENTECH-288720

PATIENT
  Sex: Male

DRUGS (6)
  1. RITUXIMAB [Suspect]
     Indication: B-CELL LYMPHOMA
     Dosage: 375 MG/M2, UNK
     Dates: start: 20090501
  2. RITUXIMAB [Suspect]
     Dosage: 375 MG/M2, UNK
     Dates: end: 20090801
  3. IFOSFAMIDE [Suspect]
     Indication: B-CELL LYMPHOMA
     Dosage: 5000 MG/M2, UNK
     Route: 042
     Dates: end: 20090801
  4. ETOPOSIDE [Suspect]
     Indication: B-CELL LYMPHOMA
     Dosage: 200 MG/M2, Q12H
     Dates: end: 20090801
  5. CARBOPLATIN [Suspect]
     Indication: B-CELL LYMPHOMA
     Dosage: 700 MG, UNK
     Dates: end: 20090801
  6. PEGFILGRASTIM [Concomitant]
     Indication: DRUG USE FOR UNKNOWN INDICATION
     Dosage: 6 MG, UNK
     Dates: start: 20090803, end: 20090803

REACTIONS (1)
  - FEBRILE NEUTROPENIA [None]
